FAERS Safety Report 14615038 (Version 2)
Quarter: 2018Q2

REPORT INFORMATION
  Report Type: Report from Study
  Country: AU (occurrence: AU)
  Receive Date: 20180308
  Receipt Date: 20180404
  Transmission Date: 20180711
  Serious: Yes (Other)
  Sender: FDA-Public Use
  Company Number: PHHY2018AU033415

PATIENT
  Sex: Female

DRUGS (1)
  1. COSENTYX [Suspect]
     Active Substance: SECUKINUMAB
     Indication: PSORIATIC ARTHROPATHY
     Dosage: 150 MG, QMO
     Route: 058
     Dates: start: 20170518

REACTIONS (5)
  - Eye disorder [Unknown]
  - Fall [Unknown]
  - Macular degeneration [Unknown]
  - Head injury [Unknown]
  - Hypertension [Unknown]
